FAERS Safety Report 5207974-X (Version None)
Quarter: 2007Q1

REPORT INFORMATION
  Report Type: 
  Country: None (occurrence: None)
  Receive Date: 20070110
  Receipt Date: 20061229
  Transmission Date: 20070707
  Serious: Yes (Hospitalization)
  Sender: FDA-Public Use
  Company Number: HQWYE130102JAN07

PATIENT
  Sex: Male

DRUGS (1)
  1. AMIODARONE HCL [Suspect]
     Dosage: ORAL
     Route: 048
     Dates: start: 20050101

REACTIONS (2)
  - FLUSHING [None]
  - VEIN DISORDER [None]
